FAERS Safety Report 21806166 (Version 1)
Quarter: 2023Q1

REPORT INFORMATION
  Report Type: Spontaneous
  Country: GB (occurrence: GB)
  Receive Date: 20230102
  Receipt Date: 20230102
  Transmission Date: 20230418
  Serious: Yes (Hospitalization, Other)
  Sender: FDA-Public Use
  Company Number: GB-MHRA-MED-202212221651215290-YJSDB

PATIENT
  Age: 70 Year
  Sex: Female
  Weight: 80 kg

DRUGS (2)
  1. NAPROXEN [Suspect]
     Active Substance: NAPROXEN
     Indication: Arthritis
     Dosage: 1000 MILLIGRAM DAILY; 500 MG TWICE A DAY ;DURATION : 769 DAYS
     Dates: start: 20201101, end: 20221210
  2. OMEPRAZOLE [Concomitant]
     Active Substance: OMEPRAZOLE
     Indication: Product prescribing issue
     Dates: start: 20201101

REACTIONS (5)
  - Abdominal pain upper [Recovering/Resolving]
  - Dehydration [Recovered/Resolved]
  - Faeces discoloured [Recovered/Resolved]
  - Blood pressure increased [Not Recovered/Not Resolved]
  - Atrial fibrillation [Not Recovered/Not Resolved]

NARRATIVE: CASE EVENT DATE: 20221203
